FAERS Safety Report 11486885 (Version 1)
Quarter: 2015Q3

REPORT INFORMATION
  Report Type: Spontaneous
  Country: US (occurrence: US)
  Receive Date: 20150910
  Receipt Date: 20150910
  Transmission Date: 20151125
  Serious: No
  Sender: FDA-Public Use
  Company Number: US-PFIZER INC-2015293187

PATIENT
  Age: 59 Year
  Sex: Male
  Weight: 100 kg

DRUGS (1)
  1. IBUPROFEN. [Suspect]
     Active Substance: IBUPROFEN
     Indication: INFLAMMATION
     Dosage: 800 MG, 2X/DAY
     Dates: start: 201507

REACTIONS (1)
  - Drug ineffective [Unknown]
